FAERS Safety Report 8129919-5 (Version None)
Quarter: 2012Q1

REPORT INFORMATION
  Report Type: 
  Country: None (occurrence: None)
  Receive Date: 20120210
  Receipt Date: 20120208
  Transmission Date: 20120608
  Serious: Yes (Other)
  Sender: FDA-Public Use
  Company Number: US-ROCHE-1005976

PATIENT
  Sex: Male

DRUGS (1)
  1. ZELBORAF [Suspect]
     Indication: PRODUCT USED FOR UNKNOWN INDICATION

REACTIONS (10)
  - RHINORRHOEA [None]
  - DIARRHOEA [None]
  - HEPATIC ENZYME INCREASED [None]
  - INSOMNIA [None]
  - FATIGUE [None]
  - HEADACHE [None]
  - BLOOD PRESSURE INCREASED [None]
  - SKIN CANCER [None]
  - INFLUENZA [None]
  - BLOOD PRESSURE DECREASED [None]
